FAERS Safety Report 9469990 (Version 2)
Quarter: 2013Q3

REPORT INFORMATION
  Report Type: Spontaneous
  Country: US (occurrence: US)
  Receive Date: 20130822
  Receipt Date: 20130904
  Transmission Date: 20140515
  Serious: Yes (Other)
  Sender: FDA-Public Use
  Company Number: US-NAPPMUNDI-USA-2013-0105481

PATIENT
  Age: 75 Year
  Sex: Female

DRUGS (1)
  1. OXYCONTIN (NDA 22-272) [Suspect]
     Indication: SYSTEMIC LUPUS ERYTHEMATOSUS
     Dosage: 20 MG, Q8H
     Route: 048

REACTIONS (9)
  - Meningioma [Not Recovered/Not Resolved]
  - Eye disorder [Not Recovered/Not Resolved]
  - Pain [Not Recovered/Not Resolved]
  - Insomnia [Not Recovered/Not Resolved]
  - Decreased appetite [Not Recovered/Not Resolved]
  - Chromatopsia [Not Recovered/Not Resolved]
  - Skin discolouration [Unknown]
  - Contusion [Not Recovered/Not Resolved]
  - Pruritus [Not Recovered/Not Resolved]
